FAERS Safety Report 16173403 (Version 2)
Quarter: 2019Q2

REPORT INFORMATION
  Report Type: Report from Study
  Country: CO (occurrence: CO)
  Receive Date: 20190409
  Receipt Date: 20190417
  Transmission Date: 20190711
  Serious: Yes (Hospitalization)
  Sender: FDA-Public Use
  Company Number: CO-SA-2019SA093434

PATIENT
  Age: 81 Year
  Sex: Female

DRUGS (15)
  1. FUROSEMIDE. [Concomitant]
     Active Substance: FUROSEMIDE
     Indication: HYPERTENSION
     Dosage: UNK
  2. LANTUS [Suspect]
     Active Substance: INSULIN GLARGINE
     Indication: TYPE 2 DIABETES MELLITUS
     Route: 058
  3. ACETAMINOPHEN. [Concomitant]
     Active Substance: ACETAMINOPHEN
     Dosage: UNK
  4. METOPROLOL. [Concomitant]
     Active Substance: METOPROLOL
     Dosage: UNK
  5. INSULIN GLULISINE [Suspect]
     Active Substance: INSULIN GLULISINE
     Indication: TYPE 2 DIABETES MELLITUS
     Route: 058
  6. DULOXETINE. [Concomitant]
     Active Substance: DULOXETINE
     Dosage: UNK
  7. TRAZODONE [Concomitant]
     Active Substance: TRAZODONE HYDROCHLORIDE
     Indication: AFRICAN TRYPANOSOMIASIS
  8. PREGABALIN. [Concomitant]
     Active Substance: PREGABALIN
     Dosage: 75 MG
  9. METHOTREXATE. [Concomitant]
     Active Substance: METHOTREXATE
     Dosage: UNK
  10. PREDNISOLONE. [Concomitant]
     Active Substance: PREDNISOLONE
     Dosage: UNK
  11. INSULIN GLARGINE [Suspect]
     Active Substance: INSULIN GLARGINE
     Indication: TYPE 2 DIABETES MELLITUS
     Dosage: 24 IU, QD
     Route: 058
     Dates: start: 201811
  12. INSULIN ASPART [Concomitant]
     Active Substance: INSULIN ASPART
     Indication: DIABETES MELLITUS
     Dosage: 5 IU, TID
  13. PANTOPRAZOLE [Concomitant]
     Active Substance: PANTOPRAZOLE
     Indication: GASTRITIS
     Dosage: UNK
  14. SPIRONOLACTONE. [Concomitant]
     Active Substance: SPIRONOLACTONE
     Dosage: UNK
  15. FOLIC ACID. [Concomitant]
     Active Substance: FOLIC ACID
     Dosage: UNK

REACTIONS (7)
  - Dehydration [Recovered/Resolved]
  - Hyperglycaemia [Recovering/Resolving]
  - Urinary tract infection [Recovered/Resolved]
  - Decreased appetite [Recovered/Resolved]
  - Skin ulcer [Recovered/Resolved]
  - Pruritus generalised [Recovered/Resolved]
  - Blood glucose increased [Recovered/Resolved]

NARRATIVE: CASE EVENT DATE: 201902
